FAERS Safety Report 17871406 (Version 1)
Quarter: 2020Q2

REPORT INFORMATION
  Report Type: Spontaneous
  Country: US (occurrence: US)
  Receive Date: 20200608
  Receipt Date: 20200608
  Transmission Date: 20200714
  Serious: Yes (Other)
  Sender: FDA-Public Use
  Company Number: None

PATIENT
  Age: 42 Year
  Sex: Female
  Weight: 64 kg

DRUGS (1)
  1. REMDESIVIR. [Suspect]
     Active Substance: REMDESIVIR
     Indication: PRODUCT USED FOR UNKNOWN INDICATION
     Dates: start: 20200601, end: 20200606

REACTIONS (3)
  - Hypotension [None]
  - Pneumonia bacterial [None]
  - Ischaemic hepatitis [None]

NARRATIVE: CASE EVENT DATE: 20200606
